FAERS Safety Report 6792476-X (Version None)
Quarter: 2010Q2

REPORT INFORMATION
  Report Type: 
  Country: None (occurrence: None)
  Receive Date: 20100624
  Receipt Date: 20100617
  Transmission Date: 20101027
  Serious: Yes (Other)
  Sender: FDA-Public Use
  Company Number: DE-AMGEN-QUU413640

PATIENT
  Sex: Male
  Weight: 116 kg

DRUGS (8)
  1. ARANESP [Suspect]
     Indication: ANAEMIA OF MALIGNANT DISEASE
     Route: 042
     Dates: start: 20071225
  2. FLECAINIDE ACETATE [Concomitant]
     Route: 048
  3. SODIUM FERRIC GLUCONATE COMPLEX [Concomitant]
     Route: 042
  4. BISOPROLOL [Concomitant]
     Route: 048
  5. CALCIUM ACETATE [Concomitant]
  6. SODIUM BICARBONATE [Concomitant]
  7. PANTOZOL [Concomitant]
  8. EPOETIN ALFA [Concomitant]

REACTIONS (3)
  - ANAEMIA [None]
  - APLASIA PURE RED CELL [None]
  - THERAPEUTIC RESPONSE DECREASED [None]
